FAERS Safety Report 6164584-8 (Version None)
Quarter: 2009Q2

REPORT INFORMATION
  Report Type: 
  Country: None (occurrence: None)
  Receive Date: 20090423
  Receipt Date: 20090416
  Transmission Date: 20091009
  Serious: Yes (Hospitalization, Other)
  Sender: FDA-Public Use
  Company Number: US-ELI_LILLY_AND_COMPANY-US200812002360

PATIENT
  Sex: Female
  Weight: 156.46 kg

DRUGS (27)
  1. BYETTA [Suspect]
     Dosage: 5 UG, 2/D
     Route: 065
     Dates: start: 20061021, end: 20070101
  2. TRICOR [Concomitant]
  3. NOVOLOG [Concomitant]
     Dosage: 60 U, 3/D
  4. LANTUS [Concomitant]
     Dosage: 50 U, EACH MORNING
  5. LANTUS [Concomitant]
     Dosage: 100 U, EACH EVENING
  6. LANTUS [Concomitant]
     Dosage: 70 U, EACH MORNING
     Route: 058
     Dates: start: 20070401
  7. LANTUS [Concomitant]
     Dosage: 45 U, EACH EVENING
     Route: 058
     Dates: start: 20070401
  8. PROPOX-N [Concomitant]
  9. PREDNISONE [Concomitant]
  10. GUAIFENESIN W/HYDROCODONE [Concomitant]
  11. CIPROFLOXACIN [Concomitant]
  12. AVELOX [Concomitant]
  13. AMBIEN [Concomitant]
  14. TRAMADOL HCL [Concomitant]
  15. ASMANEX TWISTHALER [Concomitant]
  16. HYZAAR [Concomitant]
     Dosage: UNK, 2/D
  17. LABETALOL HCL [Concomitant]
     Dosage: 200 MG, 2/D
  18. FUROSEMIDE [Concomitant]
     Dosage: 40 MG, DAILY (1/D)
     Route: 048
  19. POTASSIUM CHLORIDE [Concomitant]
     Dosage: 20 MEQ, DAILY (1/D)
  20. ESOMEPRAZOLE [Concomitant]
     Dosage: 40 MG, DAILY (1/D)
     Route: 048
  21. ALLEGRA D                          /01367401/ [Concomitant]
     Dosage: UNK, 2/D
  22. HYDROCODONE BITARTRATE [Concomitant]
  23. AMOXICILLIN TRIHYDRATE W/CLAVULANATE POTASS. [Concomitant]
  24. PROAIR HFA [Concomitant]
  25. PROMETHAZINE W/ CODEINE [Concomitant]
  26. GUAIFENESIN/CODEINE [Concomitant]
  27. ZOCOR [Concomitant]

REACTIONS (5)
  - DEHYDRATION [None]
  - HYPERGLYCAEMIA [None]
  - LOSS OF CONSCIOUSNESS [None]
  - PANCREATITIS [None]
  - RENAL FAILURE ACUTE [None]
